FAERS Safety Report 9449299 (Version 4)
Quarter: 2013Q4

REPORT INFORMATION
  Report Type: Report from Study
  Country: GR (occurrence: GR)
  Receive Date: 20130808
  Receipt Date: 20131009
  Transmission Date: 20140711
  Serious: Yes (Hospitalization)
  Sender: FDA-Public Use
  Company Number: GR-PFIZER INC-2013226471

PATIENT
  Age: 61 Year
  Sex: Male

DRUGS (7)
  1. ARACYTIN [Suspect]
     Indication: CHRONIC LYMPHOCYTIC LEUKAEMIA
     Dosage: 1000 MG, 3 DAY, EVERY 28 DAY
     Route: 042
     Dates: start: 20130720
  2. OXALIPLATIN [Suspect]
     Indication: CHRONIC LYMPHOCYTIC LEUKAEMIA
     Dosage: 60 MG, 4 DAY, EVERY 28 DAY
     Route: 042
     Dates: start: 20130719
  3. RITUXIMAB [Suspect]
     Indication: CHRONIC LYMPHOCYTIC LEUKAEMIA
     Dosage: 1000 MG EVERY 28 DAYS
     Route: 042
     Dates: start: 20130422
  4. FLUDARABINE [Suspect]
     Indication: CHRONIC LYMPHOCYTIC LEUKAEMIA
     Dosage: 60 MG , 3 DAY, EVERY 28 DAY
     Route: 042
     Dates: start: 20130720
  5. ALLOPURINOL [Concomitant]
     Indication: CHRONIC LYMPHOCYTIC LEUKAEMIA
     Dosage: 300 MG, 1X/DAY
     Route: 048
     Dates: start: 20130422
  6. ACYCLOVIR [Concomitant]
     Dosage: 400 MG, 2X/DAY
     Route: 048
     Dates: start: 20130422
  7. PENTAMIDINE [Concomitant]
     Indication: CHRONIC LYMPHOCYTIC LEUKAEMIA
     Dosage: UNK
     Dates: start: 20130718

REACTIONS (5)
  - Neutropenia [Not Recovered/Not Resolved]
  - Thrombocytopenia [Not Recovered/Not Resolved]
  - Haemoglobin decreased [Recovering/Resolving]
  - Blood creatinine increased [Recovered/Resolved]
  - Pyrexia [Not Recovered/Not Resolved]
